FAERS Safety Report 4800102-1 (Version None)
Quarter: 2005Q4

REPORT INFORMATION
  Report Type: 
  Country: None (occurrence: None)
  Receive Date: 20051012
  Receipt Date: 20051012
  Transmission Date: 20060501
  Serious: Yes (Hospitalization)
  Sender: FDA-Public Use
  Company Number: None

PATIENT
  Sex: Male
  Weight: 83.9154 kg

DRUGS (4)
  1. MERCAPTOPURINE [Suspect]
     Indication: CROHN'S DISEASE
     Dosage: [PRIOR TO ADMISSION]
  2. MERCAPTOPURINE [Suspect]
     Indication: NEOPLASM MALIGNANT
     Dosage: [PRIOR TO ADMISSION]
  3. ASACOL [Concomitant]
  4. NEXIUM [Concomitant]

REACTIONS (8)
  - ANOREXIA [None]
  - ASTHENIA [None]
  - DIARRHOEA [None]
  - JAUNDICE [None]
  - MALAISE [None]
  - NAUSEA [None]
  - PANCYTOPENIA [None]
  - WEIGHT DECREASED [None]
